FAERS Safety Report 4892464-4 (Version None)
Quarter: 2006Q1

REPORT INFORMATION
  Report Type: 
  Country: None (occurrence: None)
  Receive Date: 20060126
  Receipt Date: 20050223
  Transmission Date: 20060701
  Serious: No
  Sender: FDA-Public Use
  Company Number: US-BRISTOL-MYERS SQUIBB COMPANY-12873121

PATIENT
  Age: 10 Year
  Sex: Female
  Weight: 42 kg

DRUGS (2)
  1. CEFZIL [Suspect]
     Indication: UPPER RESPIRATORY TRACT INFECTION
     Route: 048
     Dates: start: 20050216, end: 20050201
  2. ZYRTEC [Concomitant]

REACTIONS (2)
  - SWELLING FACE [None]
  - URTICARIA [None]
